FAERS Safety Report 8466134-X (Version None)
Quarter: 2012Q2

REPORT INFORMATION
  Report Type: 
  Country: None (occurrence: None)
  Receive Date: 20120620
  Receipt Date: 20120620
  Transmission Date: 20120825
  Serious: Yes (Hospitalization)
  Sender: FDA-Public Use
  Company Number: None

PATIENT
  Sex: Male
  Weight: 81.6 kg

DRUGS (1)
  1. TRIMETHOPRIM + SULFAMETHOXAZOLE [Suspect]
     Dosage: 800/160 MG PO
     Route: 048

REACTIONS (3)
  - IDIOSYNCRATIC DRUG REACTION [None]
  - HYPERKALAEMIA [None]
  - RENAL FAILURE ACUTE [None]
